FAERS Safety Report 17360485 (Version 3)
Quarter: 2020Q1

REPORT INFORMATION
  Report Type: Report from Study
  Country: None (occurrence: HU)
  Receive Date: 20200203
  Receipt Date: 20200305
  Transmission Date: 20200409
  Serious: Yes (Death, Hospitalization)
  Sender: FDA-Public Use
  Company Number: HU-ABBVIE-20K-076-3261222-00

PATIENT
  Age: 60 Year
  Sex: Male
  Weight: 68 kg

DRUGS (1)
  1. IMBRUVICA [Suspect]
     Active Substance: IBRUTINIB
     Indication: CHRONIC LYMPHOCYTIC LEUKAEMIA
     Dosage: 2 DOSE, DAILY OF STRENGTH 140 MG
     Route: 048
     Dates: start: 201908

REACTIONS (6)
  - Renal impairment [Fatal]
  - Off label use [Unknown]
  - Sepsis [Fatal]
  - Chronic lymphocytic leukaemia [Fatal]
  - Incorrect dose administered [Unknown]
  - Biliary tract disorder [Fatal]

NARRATIVE: CASE EVENT DATE: 20200106
